FAERS Safety Report 11819293 (Version 2)
Quarter: 2017Q2

REPORT INFORMATION
  Report Type: Spontaneous
  Country: US (occurrence: US)
  Receive Date: 20151210
  Receipt Date: 20170406
  Transmission Date: 20170829
  Serious: No
  Sender: FDA-Public Use
  Company Number: US-JNJFOC-20151110094

PATIENT
  Age: 15 Year
  Sex: Male

DRUGS (7)
  1. RISPERDAL [Suspect]
     Active Substance: RISPERIDONE
     Indication: IMPULSIVE BEHAVIOUR
     Dosage: 1MG, 2MG, 4MG
     Route: 048
     Dates: start: 2007, end: 2010
  2. RISPERIDONE. [Suspect]
     Active Substance: RISPERIDONE
     Indication: PRODUCT USED FOR UNKNOWN INDICATION
     Route: 048
  3. RISPERDAL [Suspect]
     Active Substance: RISPERIDONE
     Indication: DEPRESSION
     Dosage: 1MG, 2MG, 4MG
     Route: 048
     Dates: start: 2007, end: 2010
  4. RISPERDAL [Suspect]
     Active Substance: RISPERIDONE
     Indication: AFFECTIVE DISORDER
     Dosage: 1MG, 2MG, 4MG
     Route: 048
     Dates: start: 2007, end: 2010
  5. RISPERDAL [Suspect]
     Active Substance: RISPERIDONE
     Indication: ANXIETY
     Dosage: 1MG, 2MG, 4MG
     Route: 048
     Dates: start: 2007, end: 2010
  6. RISPERDAL [Suspect]
     Active Substance: RISPERIDONE
     Indication: POST-TRAUMATIC STRESS DISORDER
     Dosage: 1MG, 2MG, 4MG
     Route: 048
     Dates: start: 2007, end: 2010
  7. RISPERDAL [Suspect]
     Active Substance: RISPERIDONE
     Indication: PSYCHOMOTOR HYPERACTIVITY
     Dosage: 1MG, 2MG, 4MG
     Route: 048
     Dates: start: 2007, end: 2010

REACTIONS (3)
  - Gynaecomastia [Unknown]
  - Sluggishness [Unknown]
  - Obesity [Unknown]

NARRATIVE: CASE EVENT DATE: 2008
